FAERS Safety Report 8619577-5 (Version None)
Quarter: 2012Q3

REPORT INFORMATION
  Report Type: 
  Country: None (occurrence: None)
  Receive Date: 20120824
  Receipt Date: 20120417
  Transmission Date: 20120928
  Serious: No
  Sender: FDA-Public Use
  Company Number: US-ASTRAZENECA-2012SE25156

PATIENT
  Sex: Male
  Weight: 80.3 kg

DRUGS (1)
  1. SYMBICORT [Suspect]
     Indication: ASTHMA
     Route: 055

REACTIONS (1)
  - BLOOD CALCIUM INCREASED [None]
